FAERS Safety Report 13738877 (Version 2)
Quarter: 2018Q2

REPORT INFORMATION
  Report Type: Spontaneous
  Country: US (occurrence: US)
  Receive Date: 20170710
  Receipt Date: 20180627
  Transmission Date: 20180711
  Serious: Yes (Other)
  Sender: FDA-Public Use
  Company Number: US-SAOL THERAPEUTICS-2017SAO01008

PATIENT
  Sex: Male

DRUGS (3)
  1. BACLOFEN. [Suspect]
     Active Substance: BACLOFEN
     Indication: MUSCLE SPASTICITY
     Dosage: 500 ?G, \DAY
     Route: 037
  2. BACLOFEN. [Suspect]
     Active Substance: BACLOFEN
     Indication: MUSCLE SPASTICITY
  3. MORPHINE [Suspect]
     Active Substance: MORPHINE
     Dosage: 5 MG, \DAY
     Route: 037

REACTIONS (2)
  - Therapy non-responder [Recovered/Resolved]
  - Pain [Recovered/Resolved]
